FAERS Safety Report 22073619 (Version 2)
Quarter: 2023Q1

REPORT INFORMATION
  Report Type: Report from Study
  Country: GB (occurrence: GB)
  Receive Date: 20230308
  Receipt Date: 20230310
  Transmission Date: 20230418
  Serious: Yes (Hospitalization)
  Sender: FDA-Public Use
  Company Number: GB-002147023-NVSC2021GB291234

PATIENT
  Age: 76 Year
  Sex: Male
  Weight: 67.3 kg

DRUGS (4)
  1. LUTETIUM OXODOTREOTIDE LU-177 [Suspect]
     Active Substance: LUTETIUM OXODOTREOTIDE LU-177
     Indication: Gastroenteropancreatic neuroendocrine tumour disease
     Dosage: 7400 MBQ, QD
     Route: 042
     Dates: start: 20211117, end: 20220504
  2. OCTREOTIDE ACETATE [Suspect]
     Active Substance: OCTREOTIDE ACETATE
     Indication: Gastroenteropancreatic neuroendocrine tumour disease
     Dosage: 30 MG, QD
     Route: 030
     Dates: start: 20211117
  3. OCTREOTIDE ACETATE [Suspect]
     Active Substance: OCTREOTIDE ACETATE
  4. OCTREOTIDE ACETATE [Suspect]
     Active Substance: OCTREOTIDE ACETATE

REACTIONS (2)
  - Myelodysplastic syndrome [Recovered/Resolved with Sequelae]
  - Second primary malignancy [Recovered/Resolved with Sequelae]

NARRATIVE: CASE EVENT DATE: 20230120
